FAERS Safety Report 25531917 (Version 1)
Quarter: 2025Q3

REPORT INFORMATION
  Report Type: Spontaneous
  Country: US (occurrence: US)
  Receive Date: 20250709
  Receipt Date: 20250709
  Transmission Date: 20251021
  Serious: No
  Sender: ROCHE
  Company Number: US-ROCHE-10000327114

PATIENT
  Age: 57 Year
  Sex: Male

DRUGS (5)
  1. VEMURAFENIB [Suspect]
     Active Substance: VEMURAFENIB
     Indication: Erdheim-Chester disease
     Route: 065
     Dates: start: 2020
  2. VEMURAFENIB [Suspect]
     Active Substance: VEMURAFENIB
     Indication: BRAF gene mutation
     Route: 065
     Dates: start: 2020
  3. HYDROCHLOROTHIAZIDE [Concomitant]
     Active Substance: HYDROCHLOROTHIAZIDE
     Indication: Hypertension
  4. LOSARTAN [Concomitant]
     Active Substance: LOSARTAN
     Indication: Hypertension
  5. ATORVASTATIN [Concomitant]
     Active Substance: ATORVASTATIN
     Indication: Hyperlipidaemia

REACTIONS (1)
  - Hepatotoxicity [Unknown]

NARRATIVE: CASE EVENT DATE: 20200101
